FAERS Safety Report 6726207-6 (Version None)
Quarter: 2010Q2

REPORT INFORMATION
  Report Type: 
  Country: None (occurrence: None)
  Receive Date: 20100514
  Receipt Date: 20100513
  Transmission Date: 20101027
  Serious: Yes (Other)
  Sender: FDA-Public Use
  Company Number: US-TEVA-234534USA

PATIENT
  Sex: Male

DRUGS (1)
  1. CEFADROXIL CAPSULES USP, 500MG [Suspect]
     Indication: STAPHYLOCOCCAL INFECTION

REACTIONS (2)
  - CARDIO-RESPIRATORY ARREST [None]
  - MYOCARDIAL INFARCTION [None]
